FAERS Safety Report 10759398 (Version 6)
Quarter: 2015Q3

REPORT INFORMATION
  Report Type: Report from Study
  Country: BE (occurrence: BE)
  Receive Date: 20150203
  Receipt Date: 20150706
  Transmission Date: 20151125
  Serious: Yes (Other)
  Sender: FDA-Public Use
  Company Number: BE-MERCK-1502BEL000056

PATIENT
  Age: 54 Year
  Sex: Female
  Weight: 68.8 kg

DRUGS (7)
  1. PEMBROLIZUMAB. [Suspect]
     Active Substance: PEMBROLIZUMAB
     Indication: BREAST CANCER
     Dosage: 10 MG/KG, Q2W
     Route: 042
     Dates: start: 20131029, end: 20141022
  2. PEMBROLIZUMAB. [Suspect]
     Active Substance: PEMBROLIZUMAB
     Dosage: 10 MG/KG, Q2W
     Route: 042
     Dates: start: 20141104, end: 20141104
  3. PEMBROLIZUMAB. [Suspect]
     Active Substance: PEMBROLIZUMAB
     Dosage: 10 MG/KG, Q2W
     Route: 042
     Dates: start: 20141118, end: 20141118
  4. DIPHENHYDRAMINE. [Concomitant]
     Active Substance: DIPHENHYDRAMINE
     Indication: PREMEDICATION
     Dosage: TOTAL DAILY DOSE: 50 MG, FREQUENCY: OTHER, FORMULATION: PILL
     Route: 048
     Dates: start: 20131029
  5. HYDROCORTISONE. [Concomitant]
     Active Substance: HYDROCORTISONE
     Indication: ERYTHEMA
     Dosage: TOTAL DAILY DOSE: 1 APPLICATION, PRN
     Route: 061
     Dates: start: 20140401
  6. ACETAMINOPHEN. [Concomitant]
     Active Substance: ACETAMINOPHEN
     Indication: PREMEDICATION
     Dosage: TOTAL DAILY DOSE: 1G, FREQUENCY: OTHER, FORMULATION: PILL
     Route: 048
     Dates: start: 20131028
  7. VENLAFAXINE HYDROCHLORIDE. [Concomitant]
     Active Substance: VENLAFAXINE HYDROCHLORIDE
     Indication: AFFECTIVE DISORDER
     Dosage: 37.5 MG, QD, FORMULATION: PILL
     Route: 048
     Dates: start: 20120510

REACTIONS (1)
  - Organising pneumonia [Not Recovered/Not Resolved]

NARRATIVE: CASE EVENT DATE: 20141113
